FAERS Safety Report 5070706-2 (Version None)
Quarter: 2006Q3

REPORT INFORMATION
  Report Type: 
  Country: None (occurrence: None)
  Receive Date: 20060804
  Receipt Date: 20050927
  Transmission Date: 20061208
  Serious: No
  Sender: FDA-Public Use
  Company Number: US-GLAXOSMITHKLINE-A0576936A

PATIENT
  Age: 32 Year
  Sex: Female

DRUGS (1)
  1. NICORETTE (MINT) [Suspect]
     Dates: start: 20050922, end: 20050923

REACTIONS (4)
  - BURNING SENSATION [None]
  - ORAL MUCOSAL EXFOLIATION [None]
  - STOMATITIS [None]
  - THERMAL BURN [None]
